FAERS Safety Report 9251522 (Version 1)
Quarter: 2013Q1

REPORT INFORMATION
  Report Type: Spontaneous
  Country: US (occurrence: None)
  Receive Date: 20130305
  Receipt Date: 20130305
  Transmission Date: 20140127
  Serious: Yes (Hospitalization)
  Sender: FDA-Public Use
  Company Number: 163-21880-12090175

PATIENT
  Age: 73 Year
  Sex: Female
  Weight: 90.72 kg

DRUGS (11)
  1. REVLIMID (LENALIDOMIDE) [Suspect]
     Indication: MYELODYSPLASTIC SYNDROME
     Route: 048
     Dates: start: 20120821
  2. HYDROCODONE/APAP (VICODIN) [Concomitant]
  3. ALPRAZOLAM (ALPRAZOLAM) [Concomitant]
  4. ASPIRIN (ACETYLSALICYLIC ACID) [Concomitant]
  5. FUROSEMIDE [Concomitant]
  6. GLYBURIDE/METFORMIN (GLIBOMET) [Concomitant]
  7. LISINOPRIL (LISINOPRIL) [Concomitant]
  8. PHENYTOIN (PHENYTOIN) [Concomitant]
  9. MIRALAX [Concomitant]
  10. PRAVASTATIN (PRAVASTATIN) [Concomitant]
  11. TRAMADOL (TRAMADOL) [Concomitant]

REACTIONS (3)
  - Acute myocardial infarction [None]
  - Anaemia [None]
  - Thrombocytopenia [None]
